FAERS Safety Report 5032802-5 (Version None)
Quarter: 2006Q2

REPORT INFORMATION
  Report Type: 
  Country: None (occurrence: None)
  Receive Date: 20060620
  Receipt Date: 20060608
  Transmission Date: 20061013
  Serious: Yes (Death, Hospitalization)
  Sender: FDA-Public Use
  Company Number: 163-21880-06030592

PATIENT
  Age: 73 Year
  Sex: Female

DRUGS (2)
  1. REVLIMID [Suspect]
     Indication: MYELODYSPLASTIC SYNDROME
     Dosage: 5 MG, DAILY, ORAL
     Route: 048
     Dates: start: 20060304, end: 20060310
  2. PREDNISONE TAB [Concomitant]

REACTIONS (9)
  - CARDIAC FAILURE CONGESTIVE [None]
  - CARDIOMEGALY [None]
  - DILATATION ATRIAL [None]
  - GASTROINTESTINAL HAEMORRHAGE [None]
  - PERICARDIAL EFFUSION [None]
  - RASH PAPULAR [None]
  - RENAL FAILURE [None]
  - THROMBOCYTOPENIA [None]
  - URTICARIA GENERALISED [None]
